FAERS Safety Report 6428109-1 (Version None)
Quarter: 2009Q4

REPORT INFORMATION
  Report Type: 
  Country: None (occurrence: None)
  Receive Date: 20091105
  Receipt Date: 20091028
  Transmission Date: 20100525
  Serious: Yes (Other)
  Sender: FDA-Public Use
  Company Number: US-NOVOPROD-291457

PATIENT
  Age: 50 Year
  Sex: Female
  Weight: 88.435 kg

DRUGS (8)
  1. NOVOLIN R [Suspect]
     Indication: INSULIN-REQUIRING TYPE 2 DIABETES MELLITUS
     Dosage: 20 IU, QD
     Route: 058
     Dates: start: 19930101
  2. NOVOLIN R [Suspect]
     Dosage: 20 IU, QD
     Route: 058
     Dates: start: 19930101
  3. NOVOLIN N [Suspect]
     Indication: INSULIN-REQUIRING TYPE 2 DIABETES MELLITUS
     Dosage: 18 IU, QD
     Route: 058
  4. SIMVASTATIN [Concomitant]
     Indication: HYPERCHOLESTEROLAEMIA
     Dosage: 1 TAB, QD AT 10PM
     Route: 048
  5. PROMETHAZINE [Concomitant]
     Indication: DRUG USE FOR UNKNOWN INDICATION
     Dosage: UNK TAB, UNK 1 PM (SOMETIMES 1 AM)
     Route: 048
  6. TYLENOL W/ CODEINE NO. 3 [Concomitant]
     Indication: PAIN
     Dosage: UNK
     Route: 065
  7. RANITIDINE [Concomitant]
     Indication: DRUG USE FOR UNKNOWN INDICATION
     Dosage: 300 MG, BID
  8. MULTIVITAMIN                       /00097801/ [Concomitant]
     Indication: DRUG USE FOR UNKNOWN INDICATION
     Dosage: 26 RCI NUTRIENTS

REACTIONS (5)
  - COLON CANCER [None]
  - DIARRHOEA [None]
  - DIZZINESS [None]
  - MUSCLE SPASMS [None]
  - VOMITING [None]
